FAERS Safety Report 12770904 (Version 1)
Quarter: 2016Q3

REPORT INFORMATION
  Report Type: Spontaneous
  Country: US (occurrence: US)
  Receive Date: 20160922
  Receipt Date: 20160922
  Transmission Date: 20161109
  Serious: Yes (Hospitalization, Other)
  Sender: FDA-Public Use
  Company Number: US-G+W LABS-GW2016US000118

PATIENT

DRUGS (5)
  1. DOXYCYCLINE. [Suspect]
     Active Substance: DOXYCYCLINE
     Indication: PNEUMONIA
  2. ESCITALOPRAM [Concomitant]
     Active Substance: ESCITALOPRAM OXALATE
  3. LITHIUM. [Suspect]
     Active Substance: LITHIUM
     Indication: BIPOLAR DISORDER
     Dosage: UNK
     Dates: start: 1996
  4. ARIPIPRAZOLE. [Concomitant]
     Active Substance: ARIPIPRAZOLE
  5. KLONOPIN [Concomitant]
     Active Substance: CLONAZEPAM

REACTIONS (3)
  - Potentiating drug interaction [Unknown]
  - Renal impairment [Recovered/Resolved]
  - Toxicity to various agents [Recovered/Resolved]
